FAERS Safety Report 15599423 (Version 2)
Quarter: 2018Q4

REPORT INFORMATION
  Report Type: Spontaneous
  Country: JP (occurrence: JP)
  Receive Date: 20181108
  Receipt Date: 20181121
  Transmission Date: 20190205
  Serious: Yes (Hospitalization)
  Sender: FDA-Public Use
  Company Number: JP-TEVA-2018-JP-003904J

PATIENT
  Age: 42 Year
  Sex: Female
  Weight: 58 kg

DRUGS (6)
  1. SALAZOSULFAPYRIDINE ENTERIC COATED TABLET 500MG TEVA [Suspect]
     Active Substance: SULFASALAZINE
     Indication: POLYMYALGIA RHEUMATICA
     Dosage: 1000 MILLIGRAM DAILY;
     Route: 048
     Dates: start: 20180615, end: 20180628
  2. LOXOPROFEN [Concomitant]
     Active Substance: LOXOPROFEN
     Dosage: AS NEEDED
     Route: 048
  3. NEXIUM [Concomitant]
     Active Substance: ESOMEPRAZOLE MAGNESIUM
     Dosage: 10 MILLIGRAM DAILY;
     Route: 048
  4. PREDONINE [Concomitant]
     Active Substance: PREDNISOLONE
     Dosage: 5 MILLIGRAM DAILY;
     Route: 048
  5. TRAMCET [Concomitant]
     Active Substance: ACETAMINOPHEN\TRAMADOL
     Dosage: AS NEEDED
     Route: 048
  6. SALAZOSULFAPYRIDINE ENTERIC COATED TABLET 500MG TEVA [Suspect]
     Active Substance: SULFASALAZINE
     Dosage: 1000 MILLIGRAM DAILY;
     Route: 048
     Dates: start: 20180629, end: 20180705

REACTIONS (3)
  - Gastrointestinal disorder [Unknown]
  - Headache [Unknown]
  - Drug eruption [Recovering/Resolving]

NARRATIVE: CASE EVENT DATE: 201806
